FAERS Safety Report 22612264 (Version 1)
Quarter: 2023Q2

REPORT INFORMATION
  Report Type: Spontaneous
  Country: FR (occurrence: FR)
  Receive Date: 20230617
  Receipt Date: 20230617
  Transmission Date: 20230721
  Serious: Yes (Death, Other)
  Sender: FDA-Public Use
  Company Number: FR-AFSSAPS-AVLY2023000197

PATIENT
  Age: 28 Year
  Sex: Male

DRUGS (1)
  1. TRAMADOL [Suspect]
     Active Substance: TRAMADOL
     Indication: Product used for unknown indication
     Dosage: UNK (INCONNUE)
     Route: 065
     Dates: end: 202203

REACTIONS (3)
  - Depressed level of consciousness [Fatal]
  - Poisoning deliberate [Fatal]
  - Respiratory depression [Fatal]
